FAERS Safety Report 21153900 (Version 2)
Quarter: 2022Q3

REPORT INFORMATION
  Report Type: Report from Study
  Country: US (occurrence: US)
  Receive Date: 20220801
  Receipt Date: 20220823
  Transmission Date: 20221026
  Serious: Yes (Hospitalization)
  Sender: FDA-Public Use
  Company Number: US-JNJFOC-20220711179

PATIENT
  Age: 82 Year
  Sex: Female
  Weight: 81.8 kg

DRUGS (3)
  1. SELEXIPAG [Suspect]
     Active Substance: SELEXIPAG
     Indication: Pulmonary hypertension
     Dosage: 200MCG ORALLY 2 TIMES DAILY
     Route: 048
  2. ELIQUIS [Concomitant]
     Active Substance: APIXABAN
  3. SILDENAFIL CITRATE [Concomitant]
     Active Substance: SILDENAFIL CITRATE

REACTIONS (6)
  - Hospitalisation [Unknown]
  - Hypoaesthesia [Unknown]
  - Epistaxis [Unknown]
  - Depressed mood [Unknown]
  - Pain in jaw [Unknown]
  - Rhinorrhoea [Unknown]

NARRATIVE: CASE EVENT DATE: 20220101
